FAERS Safety Report 17395105 (Version 1)
Quarter: 2020Q1

REPORT INFORMATION
  Report Type: Spontaneous
  Country: US (occurrence: US)
  Receive Date: 20200210
  Receipt Date: 20200210
  Transmission Date: 20200409
  Serious: No
  Sender: FDA-Public Use
  Company Number: US-009507513-2001USA007111

PATIENT
  Age: 96 Year
  Sex: Female

DRUGS (1)
  1. KEYTRUDA [Suspect]
     Active Substance: PEMBROLIZUMAB
     Dosage: UNK, EVERY THREE WEEKS
     Dates: start: 201811

REACTIONS (2)
  - Asthenia [Unknown]
  - Fatigue [Unknown]
